FAERS Safety Report 18123524 (Version 1)
Quarter: 2020Q3

REPORT INFORMATION
  Report Type: Report from Study
  Country: CA (occurrence: CA)
  Receive Date: 20200807
  Receipt Date: 20200807
  Transmission Date: 20201103
  Serious: Yes (Other)
  Sender: FDA-Public Use
  Company Number: CA-JNJFOC-20200502625

PATIENT
  Age: 49 Year
  Sex: Female
  Weight: 102.5 kg

DRUGS (4)
  1. LO LOESTRIN FE [Concomitant]
     Active Substance: ETHINYL ESTRADIOL\NORETHINDRONE ACETATE
     Indication: PRODUCT USED FOR UNKNOWN INDICATION
     Route: 048
  2. STELARA [Suspect]
     Active Substance: USTEKINUMAB
     Route: 058
     Dates: start: 2020
  3. STELARA [Suspect]
     Active Substance: USTEKINUMAB
     Indication: CROHN^S DISEASE
     Route: 058
     Dates: start: 20200109
  4. STELARA [Suspect]
     Active Substance: USTEKINUMAB
     Dosage: ON 29?JUL?2020, THE PATIENT RECEIVED 4TH INFUSION WITH DOSE 520 MG
     Route: 042
     Dates: start: 20200729

REACTIONS (8)
  - Crohn^s disease [Not Recovered/Not Resolved]
  - Fistula discharge [Unknown]
  - Drug ineffective [Unknown]
  - Product use issue [Unknown]
  - Off label use [Unknown]
  - Vaginal fistula [Not Recovered/Not Resolved]
  - Anal fistula [Unknown]
  - Vaginal abscess [Unknown]

NARRATIVE: CASE EVENT DATE: 2020
